FAERS Safety Report 8976000 (Version 1)
Quarter: 2012Q4

REPORT INFORMATION
  Report Type: Report from Study
  Country: SE (occurrence: SE)
  Receive Date: 20121219
  Receipt Date: 20121219
  Transmission Date: 20130627
  Serious: Yes (Other)
  Sender: FDA-Public Use
  Company Number: SE-ROCHE-1166896

PATIENT
  Age: 49 Year
  Sex: Female

DRUGS (4)
  1. RITUXIMAB [Suspect]
     Indication: ALLERGIC GRANULOMATOUS ANGIITIS
     Dosage: infusuion 500mg/250ml
     Route: 042
     Dates: start: 20121207, end: 20121207
  2. PREDNISOLON [Concomitant]
     Indication: ALLERGIC GRANULOMATOUS ANGIITIS
     Route: 048
  3. PARACETAMOL [Concomitant]
     Indication: PREMEDICATION
     Route: 048
  4. AERIUS [Concomitant]
     Indication: PREMEDICATION
     Route: 048
     Dates: start: 20121207, end: 20121207

REACTIONS (2)
  - Chills [Recovered/Resolved]
  - Obstructive airways disorder [Recovered/Resolved]
